FAERS Safety Report 5972502-8 (Version None)
Quarter: 2008Q4

REPORT INFORMATION
  Report Type: 
  Country: None (occurrence: None)
  Receive Date: 20081201
  Receipt Date: 20081120
  Transmission Date: 20090506
  Serious: Yes (Hospitalization, Congenital Anomaly)
  Sender: FDA-Public Use
  Company Number: B0455504A

PATIENT
  Sex: Female

DRUGS (2)
  1. LAMICTAL [Suspect]
     Dosage: 400MG PER DAY
  2. TOPIMAX [Suspect]
     Dosage: 75MG PER DAY

REACTIONS (5)
  - CONGENITAL FOOT MALFORMATION [None]
  - CONGENITAL HAND MALFORMATION [None]
  - DRUG EXPOSURE DURING PREGNANCY [None]
  - HEART DISEASE CONGENITAL [None]
  - PREMATURE BABY [None]
